FAERS Safety Report 18102845 (Version 3)
Quarter: 2021Q4

REPORT INFORMATION
  Report Type: Report from Study
  Country: US (occurrence: US)
  Receive Date: 20200803
  Receipt Date: 20211214
  Transmission Date: 20220303
  Serious: Yes (Death, Other)
  Sender: FDA-Public Use
  Company Number: US-ACADIA PHARMACEUTICALS INC.-ACA-2020-PIM-002270

PATIENT
  Sex: Male
  Weight: 66 kg

DRUGS (30)
  1. NUPLAZID [Suspect]
     Active Substance: PIMAVANSERIN TARTRATE
     Indication: Parkinson^s disease psychosis
     Dosage: 34 MILLIGRAM, QD
     Route: 065
     Dates: start: 20190419, end: 20211101
  2. NUPLAZID [Suspect]
     Active Substance: PIMAVANSERIN TARTRATE
     Indication: Hallucination
     Dosage: 44 MILLIGRAM, QD (34 MG + 10 MG)
     Route: 065
  3. NUPLAZID [Suspect]
     Active Substance: PIMAVANSERIN TARTRATE
     Indication: Delusion
  4. NUPLAZID [Suspect]
     Active Substance: PIMAVANSERIN TARTRATE
     Dosage: 10 MILLIGRAM, QD
     Route: 065
  5. NUPLAZID [Suspect]
     Active Substance: PIMAVANSERIN TARTRATE
     Dosage: 44 MILLIGRAM, QD (10 MG + 34 MG)
     Route: 065
  6. PANTOPRAZOLE MAGNESIUM [Concomitant]
     Active Substance: PANTOPRAZOLE MAGNESIUM
     Dosage: 1 TAB/24 HRS EMPTY STOMACH
  7. XYZAL [Concomitant]
     Active Substance: LEVOCETIRIZINE DIHYDROCHLORIDE
     Dosage: 1 TAB/ 24 HRS EMPTY STOMACH
  8. MIRALAX [Concomitant]
     Active Substance: POLYETHYLENE GLYCOL 3350
     Dosage: 1 PACKET 17 GR/24HRS EMPTY STOMACH
  9. METAMUCIL [Concomitant]
     Active Substance: PLANTAGO SEED
     Dosage: 1 PACKET/24 HRS EMPTY STOMACH
  10. SINEMET [Concomitant]
     Active Substance: CARBIDOPA\LEVODOPA
     Dosage: 1 TAB/24 HRS, BREAKFAST/ 1/2TAB/24 HRS, DINNER
  11. AKINETON [Concomitant]
     Active Substance: BIPERIDEN HYDROCHLORIDE
     Dosage: 2 MG (1/2 TAB/ 12 HRS BREAKFAST, 1/2 DINNER)
  12. PK-MERZ [AMANTADINE] [Concomitant]
     Dosage: 100 MG (1/2 TAB/12 HRS BREAKFAST, 1/2 HRS DINNER)
  13. PANTYRASE [Concomitant]
     Dosage: 2 TAB 2 TIMES/ DAY
  14. NUCLEO CMP FORTE [Concomitant]
     Dosage: 1 CAP/ 12HRS
  15. CITICOLINE [Concomitant]
     Active Substance: CITICOLINE
     Dosage: 100 MG (2CC/8HRS)
  16. PLAVIX [Concomitant]
     Active Substance: CLOPIDOGREL BISULFATE
     Dosage: 1 TAB/24 HRS
  17. PACIFEN [Concomitant]
     Dosage: 3 MG (1/2 TAB/24 HRS)
  18. MELATONIN [Concomitant]
     Active Substance: MELATONIN
     Dosage: 5 MG (1 TAB/24HRS AND 1 TAB/24 HRS BEFORE BED)
  19. NEUPRO [Concomitant]
     Active Substance: ROTIGOTINE
     Dosage: 6 MG (1/2 PATCH/ 24 HRS BEFORE BED)
  20. NASONEX [Concomitant]
     Active Substance: MOMETASONE FUROATE
     Dosage: 1 SPRAY/NOSTRIL/12 HRS
  21. VITAMIN D3 [Concomitant]
     Active Substance: CHOLECALCIFEROL
     Dosage: 400 UI (3DROPS/24HRS)
  22. ZINC [Concomitant]
     Active Substance: ZINC
     Dosage: 3ML/24HRS
  23. ENSURE ADVANCE [Concomitant]
     Dosage: 2 GLASSES/DAY
  24. LASIX [Concomitant]
     Active Substance: FUROSEMIDE
     Dosage: 400 MG (1 TAB 3 TIMES/DAY)
  25. ALDACTONE [Concomitant]
     Active Substance: SPIRONOLACTONE
     Dosage: 100 MG (1/2 TAB/ 24 HRS)
  26. TAMSULOSIN HYDROCHLORIDE [Concomitant]
     Active Substance: TAMSULOSIN HYDROCHLORIDE
     Dosage: 0.4 MG (1 CAP/24 RS)
  27. GLUTAPAK R [Concomitant]
     Dosage: 1 PACKET/24 HRS
  28. ENTEREX HEPATIC [Concomitant]
     Dosage: 1 PACKET/24 HRS
  29. CARBOXYMETHYLCELLULOSE SODIUM\GLYCERIN [Concomitant]
     Active Substance: CARBOXYMETHYLCELLULOSE SODIUM\GLYCERIN
     Dosage: 1 DROP 3 TIMES/DAY
  30. TIMOPTIC [Concomitant]
     Active Substance: TIMOLOL MALEATE
     Dosage: 5 MG 1 DROPS 2 TIMES/DAY

REACTIONS (5)
  - Cardiac arrest [Recovered/Resolved]
  - Therapeutic response unexpected [Unknown]
  - Loss of personal independence in daily activities [Unknown]
  - Hallucination, visual [Not Recovered/Not Resolved]
  - Overdose [Unknown]

NARRATIVE: CASE EVENT DATE: 20200101
